FAERS Safety Report 16571837 (Version 2)
Quarter: 2019Q3

REPORT INFORMATION
  Report Type: Spontaneous
  Country: AT (occurrence: AT)
  Receive Date: 20190715
  Receipt Date: 20190724
  Transmission Date: 20191004
  Serious: Yes (Hospitalization, Other)
  Sender: FDA-Public Use
  Company Number: AT-INCYTE CORPORATION-2019IN006808

PATIENT

DRUGS (1)
  1. JAKAVI [Suspect]
     Active Substance: RUXOLITINIB
     Indication: MYELOFIBROSIS
     Dosage: 20 MG, QD
     Route: 048
     Dates: start: 20130719

REACTIONS (4)
  - Polycythaemia vera [Not Recovered/Not Resolved]
  - Myeloproliferative neoplasm [Not Recovered/Not Resolved]
  - Blast cell proliferation [Not Recovered/Not Resolved]
  - Acute leukaemia [Unknown]

NARRATIVE: CASE EVENT DATE: 20190313
